FAERS Safety Report 13033789 (Version 1)
Quarter: 2016Q4

REPORT INFORMATION
  Report Type: Other
  Country: CA (occurrence: CA)
  Receive Date: 20161216
  Receipt Date: 20161216
  Transmission Date: 20170207
  Serious: Yes (Other)
  Sender: FDA-Public Use
  Company Number: CA-APOTEX-2016AP015531

PATIENT
  Age: 26 Year
  Sex: Male

DRUGS (2)
  1. PMS-CLONAZEPAM [Suspect]
     Active Substance: CLONAZEPAM
     Indication: EPILEPSY
     Dosage: 4 MG, BID
     Route: 065
  2. APO-CLONAZEPAM [Suspect]
     Active Substance: CLONAZEPAM
     Indication: EPILEPSY
     Dosage: 4 MG, QD
     Route: 065

REACTIONS (3)
  - Drug ineffective [Recovered/Resolved]
  - Condition aggravated [Recovered/Resolved]
  - Seizure [Recovered/Resolved]
